FAERS Safety Report 5390853-5 (Version None)
Quarter: 2007Q3

REPORT INFORMATION
  Report Type: 
  Country: None (occurrence: None)
  Receive Date: 20070716
  Receipt Date: 20070706
  Transmission Date: 20080115
  Serious: Yes (Life-Threatening, Hospitalization, Disabling)
  Sender: FDA-Public Use
  Company Number: 430004E07DEU

PATIENT
  Age: 65 Year
  Sex: Male

DRUGS (3)
  1. NOVANTRONE [Suspect]
     Dosage: 14 MG, ONCE
     Dates: start: 20060419, end: 20060423
  2. CYTARABINE [Suspect]
     Dosage: 200 MG, ONCE
     Dates: start: 20060419, end: 20060425
  3. ETOPOSIDE [Suspect]
     Dosage: 200 MG, ONCE,
     Dates: start: 20060419, end: 20060421

REACTIONS (4)
  - BRONCHOPULMONARY ASPERGILLOSIS [None]
  - ENTEROCOCCAL INFECTION [None]
  - THROMBOTIC MICROANGIOPATHY [None]
  - VISION BLURRED [None]
